FAERS Safety Report 18305363 (Version 2)
Quarter: 2020Q4

REPORT INFORMATION
  Report Type: Spontaneous
  Country: US (occurrence: US)
  Receive Date: 20200923
  Receipt Date: 20201026
  Transmission Date: 20210113
  Serious: Yes (Other)
  Sender: FDA-Public Use
  Company Number: US-JNJFOC-20200745251

PATIENT
  Age: 83 Year
  Sex: Male

DRUGS (5)
  1. XARELTO [Suspect]
     Active Substance: RIVAROXABAN
     Indication: PRODUCT USED FOR UNKNOWN INDICATION
     Route: 048
     Dates: start: 202003
  2. ALLOPURINOL. [Concomitant]
     Active Substance: ALLOPURINOL
     Indication: GOUT
     Dosage: OVER 10 YEARS
  3. LASIX [Concomitant]
     Active Substance: FUROSEMIDE
     Dosage: STARTED LAST YEAR, TO BE TAKEN AS NEEDED
  4. XARELTO [Suspect]
     Active Substance: RIVAROXABAN
     Route: 048
  5. ATENOLOL. [Concomitant]
     Active Substance: ATENOLOL
     Indication: HYPERTENSION
     Dosage: OVER 10 YEARS

REACTIONS (3)
  - COVID-19 [Unknown]
  - Weight decreased [Unknown]
  - Cholelithiasis [Unknown]
